FAERS Safety Report 5823912-0 (Version None)
Quarter: 2008Q3

REPORT INFORMATION
  Report Type: 
  Country: None (occurrence: None)
  Receive Date: 20080724
  Receipt Date: 20080715
  Transmission Date: 20090109
  Serious: Yes (Other)
  Sender: FDA-Public Use
  Company Number: 08-008

PATIENT
  Sex: Female

DRUGS (1)
  1. PYRANTEL PAMOATE 720.5 MG A+Z PHARMACEUTICAL [Suspect]
     Indication: ENTEROBIASIS
     Dosage: 2 TABS ONCE ORALLY
     Route: 048
     Dates: start: 20080701

REACTIONS (3)
  - ASTHMA [None]
  - COUGH [None]
  - RESPIRATORY DISORDER [None]
